FAERS Safety Report 9745992 (Version 1)
Quarter: 2013Q4

REPORT INFORMATION
  Report Type: Spontaneous
  Country: US (occurrence: None)
  Receive Date: 20131206
  Receipt Date: 20131206
  Transmission Date: 20140711
  Serious: Yes (Hospitalization)
  Sender: FDA-Public Use
  Company Number: None

PATIENT
  Age: 73 Year
  Sex: Female
  Weight: 71.1 kg

DRUGS (5)
  1. ALENDRONATE [Suspect]
  2. ASPIRIN [Concomitant]
  3. LEVOTHYROXINE [Concomitant]
  4. OMEGA 3 [Concomitant]
  5. TRENTAL [Concomitant]

REACTIONS (1)
  - Femur fracture [None]
